FAERS Safety Report 14907335 (Version 7)
Quarter: 2018Q4

REPORT INFORMATION
  Report Type: Spontaneous
  Country: JP (occurrence: JP)
  Receive Date: 20180517
  Receipt Date: 20181108
  Transmission Date: 20190204
  Serious: Yes (Death, Life-Threatening, Hospitalization, Other)
  Sender: FDA-Public Use
  Company Number: JP-BRISTOL-MYERS SQUIBB COMPANY-BMS-2018-029967

PATIENT
  Age: 33 Year
  Sex: Male
  Weight: 70 kg

DRUGS (10)
  1. RINDERON                           /00008501/ [Suspect]
     Active Substance: BETAMETHASONE
     Indication: PRODUCT USED FOR UNKNOWN INDICATION
     Dosage: 18 MG, UNK
     Route: 065
     Dates: start: 20180514, end: 20180514
  2. ROPION [Suspect]
     Active Substance: FLURBIPROFEN AXETIL
     Indication: PRODUCT USED FOR UNKNOWN INDICATION
     Dosage: 50 MG, QD
     Route: 065
     Dates: start: 20180522, end: 20180523
  3. RINDERON                           /00008501/ [Suspect]
     Active Substance: BETAMETHASONE
     Indication: OTITIS EXTERNA
     Dosage: UNK
     Route: 065
     Dates: start: 20180505, end: 20180508
  4. RINDERON                           /00008501/ [Suspect]
     Active Substance: BETAMETHASONE
     Indication: PRODUCT USED FOR UNKNOWN INDICATION
     Dosage: 1 DF, UNK
     Route: 001
     Dates: start: 20180403, end: 20180419
  5. BAYASPIRIN [Suspect]
     Active Substance: ASPIRIN
     Indication: CEREBRAL INFARCTION
     Dosage: 200 MG, QD
     Route: 065
     Dates: start: 20180502, end: 20180508
  6. TRAMCET [Suspect]
     Active Substance: ACETAMINOPHEN\TRAMADOL
     Indication: ARTHRALGIA
     Dosage: UNK
     Route: 048
     Dates: start: 20180325, end: 20180502
  7. RINDERON                           /00008501/ [Suspect]
     Active Substance: BETAMETHASONE
     Indication: EPIGLOTTITIS
     Dosage: 2 MG, QD
     Route: 065
     Dates: start: 20180505, end: 20180505
  8. OPDIVO [Suspect]
     Active Substance: NIVOLUMAB
     Indication: HEAD AND NECK CANCER
     Dosage: 3 MG/KG, UNK
     Route: 041
     Dates: start: 20170904, end: 20180424
  9. BAYASPIRIN [Suspect]
     Active Substance: ASPIRIN
     Indication: PROPHYLAXIS
     Dosage: 100 MG, UNK
     Route: 065
     Dates: start: 20180509
  10. TRAMAL [Suspect]
     Active Substance: TRAMADOL
     Indication: ARTHRALGIA
     Route: 065

REACTIONS (23)
  - Haematochezia [Recovering/Resolving]
  - Headache [Not Recovered/Not Resolved]
  - Myositis [Unknown]
  - Vomiting [Recovering/Resolving]
  - Pyrexia [Recovering/Resolving]
  - Epilepsy [Unknown]
  - Anaemia [Not Recovered/Not Resolved]
  - Contrast media allergy [Unknown]
  - Musculoskeletal pain [Not Recovered/Not Resolved]
  - Nausea [Recovering/Resolving]
  - Malignant neoplasm progression [Fatal]
  - Vocal cord paralysis [Not Recovered/Not Resolved]
  - Dysphagia [Not Recovered/Not Resolved]
  - Eyelid ptosis [Recovering/Resolving]
  - Vision blurred [Recovered/Resolved]
  - Cerebral infarction [Not Recovered/Not Resolved]
  - Pneumonia aspiration [Fatal]
  - Respiratory failure [Unknown]
  - Epiglottitis [Unknown]
  - Hypoaesthesia oral [Recovered/Resolved]
  - Diplopia [Recovered/Resolved]
  - Otitis externa [Recovering/Resolving]
  - Malaise [Not Recovered/Not Resolved]

NARRATIVE: CASE EVENT DATE: 20171003
